FAERS Safety Report 11335416 (Version 4)
Quarter: 2016Q2

REPORT INFORMATION
  Report Type: Spontaneous
  Country: US (occurrence: US)
  Receive Date: 20150804
  Receipt Date: 20160511
  Transmission Date: 20160815
  Serious: Yes (Hospitalization, Other)
  Sender: FDA-Public Use
  Company Number: US-PFIZER INC-2015251840

PATIENT
  Age: 37 Year
  Sex: Male
  Weight: 97 kg

DRUGS (3)
  1. BENEFIX [Suspect]
     Active Substance: COAGULATION FACTOR IX RECOMBINANT HUMAN\ISOPROPYL ALCOHOL
     Indication: FACTOR IX DEFICIENCY
     Dosage: UNK BID, AS NEEDED
     Route: 042
  2. BENEFIX [Suspect]
     Active Substance: COAGULATION FACTOR IX RECOMBINANT HUMAN\ISOPROPYL ALCOHOL
     Dosage: 4000 IU, 2X/DAY FOR 7 DAYS
     Route: 042
  3. BENEFIX [Suspect]
     Active Substance: COAGULATION FACTOR IX RECOMBINANT HUMAN\ISOPROPYL ALCOHOL
     Dosage: 4000 IU, DAILY FOR 21 DAYS
     Route: 042

REACTIONS (10)
  - Haematoma [Unknown]
  - Activated partial thromboplastin time prolonged [Unknown]
  - Red blood cell count decreased [Unknown]
  - Haemoglobin decreased [Unknown]
  - Muscle rupture [Unknown]
  - Hyperglycaemia [Unknown]
  - Liver function test increased [Unknown]
  - Haematocrit decreased [Unknown]
  - Pain in extremity [Unknown]
  - Haemorrhage [Unknown]

NARRATIVE: CASE EVENT DATE: 201507
